FAERS Safety Report 9691008 (Version 1)
Quarter: 2013Q4

REPORT INFORMATION
  Report Type: Spontaneous
  Country: JP (occurrence: JP)
  Receive Date: 20131115
  Receipt Date: 20131115
  Transmission Date: 20140711
  Serious: Yes (Hospitalization, Other)
  Sender: FDA-Public Use
  Company Number: JP-JHP PHARMACEUTICALS, LLC-JHP201300697

PATIENT
  Age: 41 Year
  Sex: 0

DRUGS (7)
  1. DANTRIUM [Suspect]
     Indication: NEUROLEPTIC MALIGNANT SYNDROME
     Dosage: 40 MG, DAILY
  2. DANTRIUM [Suspect]
     Dosage: 160 MG
  3. SEVOFLURANE [Concomitant]
  4. FENTANYL [Concomitant]
  5. REMIFENTANIL [Concomitant]
  6. ROCURONIUM [Concomitant]
  7. PROPOFOL [Concomitant]

REACTIONS (1)
  - Drug ineffective [Recovered/Resolved]
